FAERS Safety Report 5701773-8 (Version None)
Quarter: 2008Q2

REPORT INFORMATION
  Report Type: 
  Country: None (occurrence: None)
  Receive Date: 20080410
  Receipt Date: 20080410
  Transmission Date: 20081010
  Serious: Yes (Life-Threatening, Other)
  Sender: FDA-Public Use
  Company Number: None

PATIENT
  Age: 64 Year
  Sex: Female
  Weight: 74.8435 kg

DRUGS (1)
  1. LIPITOR [Suspect]
     Dosage: 1 DAILY 047
     Dates: start: 20050801

REACTIONS (6)
  - CHOKING [None]
  - FLATULENCE [None]
  - GASTRIC ULCER [None]
  - LOSS OF CONSCIOUSNESS [None]
  - MUSCLE SPASMS [None]
  - OESOPHAGEAL FOOD IMPACTION [None]
